FAERS Safety Report 9155885 (Version 1)
Quarter: 2013Q1

REPORT INFORMATION
  Report Type: Spontaneous
  Country: MX (occurrence: MX)
  Receive Date: 20130311
  Receipt Date: 20130311
  Transmission Date: 20140127
  Serious: Yes (Other)
  Sender: FDA-Public Use
  Company Number: PHHY2013MX023370

PATIENT
  Age: 64 Year
  Sex: Female

DRUGS (4)
  1. ONBREZ [Suspect]
     Indication: ASTHMA
     Dosage: 150 UG, UNK
  2. COMBIVENT [Concomitant]
     Indication: ASTHMA
     Dosage: 2 (UNK) DAILY
  3. AVELOX [Concomitant]
     Indication: ASTHMA
     Dosage: 2 (UNK) DAILY
     Dates: start: 201301
  4. SERETIDE [Concomitant]
     Indication: ASTHMA
     Dosage: 4 PUFFS DAILY

REACTIONS (6)
  - Chest discomfort [Not Recovered/Not Resolved]
  - Lung disorder [Not Recovered/Not Resolved]
  - Dyspnoea [Not Recovered/Not Resolved]
  - Exercise tolerance decreased [Not Recovered/Not Resolved]
  - Off label use [Unknown]
  - Headache [Not Recovered/Not Resolved]
